FAERS Safety Report 6361591-7 (Version None)
Quarter: 2009Q3

REPORT INFORMATION
  Report Type: 
  Country: None (occurrence: None)
  Receive Date: 20090918
  Receipt Date: 20090909
  Transmission Date: 20100115
  Serious: Yes (Hospitalization)
  Sender: FDA-Public Use
  Company Number: PHEH2009US09459

PATIENT
  Sex: Female

DRUGS (1)
  1. EXJADE [Suspect]
     Indication: IRON OVERLOAD
     Dosage: 1000 AND 1500 MG DAILY
     Route: 048
     Dates: start: 20090714, end: 20090819

REACTIONS (5)
  - APHAGIA [None]
  - DIARRHOEA [None]
  - DIZZINESS [None]
  - FAILURE TO THRIVE [None]
  - VOMITING [None]
